FAERS Safety Report 6576980-5 (Version None)
Quarter: 2010Q1

REPORT INFORMATION
  Report Type: 
  Country: None (occurrence: None)
  Receive Date: 20100210
  Receipt Date: 20100129
  Transmission Date: 20100710
  Serious: Yes (Other)
  Sender: FDA-Public Use
  Company Number: JP-PFIZER INC-2010007390

PATIENT
  Age: 78 Year
  Sex: Female

DRUGS (15)
  1. ZITHROMAX [Suspect]
     Indication: UPPER RESPIRATORY TRACT INFLAMMATION
     Dosage: 500 MG, 1X/DAY
     Route: 048
     Dates: start: 20091203, end: 20091205
  2. PL GRAN. [Concomitant]
     Indication: UPPER RESPIRATORY TRACT INFLAMMATION
     Dosage: 3 G, 1X/DAY
     Dates: start: 20091203, end: 20091216
  3. DASEN [Concomitant]
     Indication: UPPER RESPIRATORY TRACT INFLAMMATION
     Route: 048
     Dates: start: 20091203, end: 20091216
  4. CALONAL [Concomitant]
     Indication: UPPER RESPIRATORY TRACT INFLAMMATION
     Dosage: 400 MG, 1X/DAY
     Route: 048
     Dates: start: 20091203, end: 20091216
  5. ISODINE [Concomitant]
     Indication: UPPER RESPIRATORY TRACT INFLAMMATION
     Dates: start: 20091203, end: 20091216
  6. EUGLUCON [Concomitant]
     Route: 048
     Dates: end: 20091201
  7. BUFFERIN [Concomitant]
     Route: 048
     Dates: end: 20091201
  8. LOSARTAN POTASSIUM [Concomitant]
     Route: 048
     Dates: end: 20091201
  9. URSO 250 [Concomitant]
     Route: 048
     Dates: end: 20091201
  10. BASEN [Concomitant]
     Route: 048
     Dates: end: 20091201
  11. LIPITOR [Concomitant]
     Route: 048
     Dates: end: 20091201
  12. PURSENNID [Concomitant]
     Route: 048
  13. ATELEC [Concomitant]
     Route: 048
  14. GLYCORAN [Concomitant]
     Route: 048
  15. ZETIA [Concomitant]
     Route: 048

REACTIONS (3)
  - BILE DUCT STONE [None]
  - LIVER FUNCTION TEST ABNORMAL [None]
  - PRURITUS [None]
